FAERS Safety Report 15369222 (Version 1)
Quarter: 2018Q3

REPORT INFORMATION
  Report Type: Spontaneous
  Country: FR (occurrence: FR)
  Receive Date: 20180911
  Receipt Date: 20180911
  Transmission Date: 20181010
  Serious: Yes (Other)
  Sender: FDA-Public Use
  Company Number: FR-TEVA-2018-FR-952156

PATIENT
  Age: 77 Year
  Sex: Male

DRUGS (3)
  1. VORICONAZOLE. [Suspect]
     Active Substance: VORICONAZOLE
     Dosage: 100 MILLIGRAM DAILY;
     Route: 065
  2. VORICONAZOLE. [Suspect]
     Active Substance: VORICONAZOLE
     Dosage: 200 MILLIGRAM DAILY;
     Route: 065
  3. VORICONAZOLE. [Suspect]
     Active Substance: VORICONAZOLE
     Indication: BRONCHOPULMONARY ASPERGILLOSIS
     Dosage: 400 MILLIGRAM DAILY;
     Route: 065

REACTIONS (7)
  - Dyschromatopsia [Recovering/Resolving]
  - Hallucination, visual [Recovered/Resolved]
  - Retinal toxicity [Recovering/Resolving]
  - Visual acuity reduced [Recovering/Resolving]
  - Visual field defect [Recovering/Resolving]
  - Photophobia [Not Recovered/Not Resolved]
  - Vision blurred [Recovering/Resolving]
